FAERS Safety Report 9431987 (Version 2)
Quarter: 2013Q3

REPORT INFORMATION
  Report Type: Spontaneous
  Country: CA (occurrence: CA)
  Receive Date: 20130731
  Receipt Date: 20130815
  Transmission Date: 20140515
  Serious: Yes (Life-Threatening, Hospitalization, Disabling, Other)
  Sender: FDA-Public Use
  Company Number: CA-JNJFOC-20130714379

PATIENT
  Age: 79 Year
  Sex: Female
  Weight: 75.6 kg

DRUGS (9)
  1. XARELTO [Suspect]
     Indication: CEREBROVASCULAR ACCIDENT PROPHYLAXIS
     Route: 048
  2. XARELTO [Suspect]
     Indication: ATRIAL FIBRILLATION
     Route: 048
  3. ASPIRIN [Concomitant]
     Route: 048
  4. HYDROCHLOROTHIAZIDE / LOSARTAN [Concomitant]
     Dosage: 100/12.5MG
     Route: 048
  5. SYNTHROID [Concomitant]
     Dosage: 100/12.5MG
     Route: 048
  6. CELEBREX [Concomitant]
     Dosage: 100/12.5MG
     Route: 048
  7. LANOXIN [Concomitant]
     Dosage: 100/12.5MG
     Route: 048
  8. METOPROLOL [Concomitant]
     Dosage: 100/12.5MG
     Route: 048
  9. LIPITOR [Concomitant]
     Dosage: 100/12.5MG
     Route: 048

REACTIONS (2)
  - Ischaemic stroke [Recovered/Resolved with Sequelae]
  - Blood pressure increased [Unknown]
